FAERS Safety Report 9837426 (Version 2)
Quarter: 2014Q1

REPORT INFORMATION
  Report Type: Spontaneous
  Country: SE (occurrence: SE)
  Receive Date: 20140123
  Receipt Date: 20140123
  Transmission Date: 20141002
  Serious: Yes (Other)
  Sender: FDA-Public Use
  Company Number: SE-ELI_LILLY_AND_COMPANY-SE201307000343

PATIENT
  Sex: Female

DRUGS (3)
  1. FORSTEO [Suspect]
     Indication: OSTEOPOROSIS
     Dosage: 20 UG, QD
     Route: 058
     Dates: start: 201211, end: 201307
  2. CALCIUM [Concomitant]
  3. VITAMIN D NOS [Concomitant]

REACTIONS (4)
  - Rheumatoid arthritis [Unknown]
  - Weight increased [Recovering/Resolving]
  - Fatigue [Unknown]
  - Coccydynia [Unknown]
